FAERS Safety Report 11602781 (Version 1)
Quarter: 2015Q4

REPORT INFORMATION
  Report Type: Spontaneous
  Country: US (occurrence: US)
  Receive Date: 20151006
  Receipt Date: 20151006
  Transmission Date: 20160304
  Serious: No
  Sender: FDA-Public Use
  Company Number: US-AMGEN-USASP2015083470

PATIENT
  Age: 70 Year
  Sex: Female

DRUGS (2)
  1. VITAMINS                           /00067501/ [Concomitant]
     Active Substance: VITAMINS
  2. PROLIA [Suspect]
     Active Substance: DENOSUMAB
     Indication: OSTEOPOROSIS
     Dosage: UNK
     Route: 065
     Dates: start: 201409

REACTIONS (11)
  - Speech disorder [Unknown]
  - Lymphadenopathy [Unknown]
  - Feeling abnormal [Unknown]
  - Tooth disorder [Unknown]
  - Tooth extraction [Unknown]
  - Bone disorder [Unknown]
  - Depression [Unknown]
  - Migraine [Unknown]
  - Impaired healing [Unknown]
  - Jaw disorder [Unknown]
  - Tooth loss [Unknown]
